FAERS Safety Report 8764557 (Version 1)
Quarter: 2012Q4

REPORT INFORMATION
  Report Type: 
  Country: US (occurrence: US)
  Receive Date: 20120831
  Receipt Date: 20120831
  Transmission Date: 20130627
  Serious: No
  Sender: FDA-Public Use
  Company Number: US-ASTRAZENECA-2012SE27884

PATIENT
  Age: 39 Year
  Sex: Male
  Weight: 68 kg

DRUGS (4)
  1. SYMBICORT [Suspect]
     Indication: ASTHMA
     Dosage: 80/4.5, PRN
     Route: 055
  2. SYMBICORT [Suspect]
     Indication: ASTHMA
     Dosage: 80/4.5, ONES A MONTH
     Route: 055
  3. SYMBICORT [Suspect]
     Indication: ASTHMA
     Dosage: 80/4.5, TWICW A MONTH
     Route: 055
  4. ACTONEL [Concomitant]
     Indication: OSTEOPOROSIS

REACTIONS (2)
  - Retinal oedema [Unknown]
  - Off label use [Unknown]
